FAERS Safety Report 15731347 (Version 1)
Quarter: 2018Q4

REPORT INFORMATION
  Report Type: Spontaneous
  Country: IE (occurrence: IE)
  Receive Date: 20181217
  Receipt Date: 20181217
  Transmission Date: 20190205
  Serious: Yes (Other)
  Sender: FDA-Public Use
  Company Number: IE-SHIRE-IE201848187

PATIENT

DRUGS (3)
  1. KIOVIG [Suspect]
     Active Substance: HUMAN IMMUNOGLOBULIN G
     Indication: GUILLAIN-BARRE SYNDROME
     Dosage: 400 MG/KG, TOT
     Route: 042
  2. BENZYLPENICILLIN [Concomitant]
     Active Substance: PENICILLIN G
     Indication: BOTULISM
     Dosage: 2000000 IU, Q4H
     Route: 042
  3. BOTULISM ANTITOXIN NOS [Concomitant]
     Active Substance: BOTULISM ANTITOXIN
     Indication: BOTULISM
     Dosage: 500 ML, TOT
     Route: 065

REACTIONS (1)
  - Therapy non-responder [Unknown]
